FAERS Safety Report 16895461 (Version 1)
Quarter: 2019Q4

REPORT INFORMATION
  Report Type: Spontaneous
  Country: US (occurrence: US)
  Receive Date: 20190814
  Receipt Date: 20190814
  Transmission Date: 20200122
  Serious: No
  Sender: FDA-Public Use
  Company Number: None

PATIENT
  Age: 62 Year
  Sex: Female

DRUGS (1)
  1. TALTZ [Suspect]
     Active Substance: IXEKIZUMAB
     Dates: start: 201808

REACTIONS (3)
  - Somnolence [None]
  - Pruritus [None]
  - Peripheral swelling [None]

NARRATIVE: CASE EVENT DATE: 20190609
